FAERS Safety Report 9638151 (Version 1)
Quarter: 2013Q4

REPORT INFORMATION
  Report Type: Spontaneous
  Country: US (occurrence: US)
  Receive Date: 20131022
  Receipt Date: 20131022
  Transmission Date: 20140711
  Serious: No
  Sender: FDA-Public Use
  Company Number: US-PFIZER INC-2013297935

PATIENT
  Age: 93 Year
  Sex: Female
  Weight: 58.96 kg

DRUGS (2)
  1. HYDROXYZINE PAMOATE [Suspect]
     Indication: HYPERSENSITIVITY
     Dosage: UNK
     Dates: start: 201309
  2. OXYGEN [Concomitant]
     Indication: DYSPNOEA
     Dosage: UNK

REACTIONS (2)
  - Drug ineffective [Unknown]
  - Pruritus [Not Recovered/Not Resolved]
